FAERS Safety Report 23977924 (Version 1)
Quarter: 2024Q2

REPORT INFORMATION
  Report Type: Spontaneous
  Country: IT (occurrence: IT)
  Receive Date: 20240614
  Receipt Date: 20240614
  Transmission Date: 20240715
  Serious: Yes (Hospitalization)
  Sender: FDA-Public Use
  Company Number: None

PATIENT
  Age: 38 Year
  Sex: Male
  Weight: 75 kg

DRUGS (6)
  1. QUETIAPINE [Suspect]
     Active Substance: QUETIAPINE
     Indication: Depression
     Dosage: FOR THE FIRST TWO DAYS THE DRUG WAS ADMINISTERED AT A DOSAGE OF 25 MG/DAY, THEN INCREASED TO 50 M...
     Route: 048
     Dates: start: 20240422, end: 20240506
  2. UNIFOL [Concomitant]
     Indication: Sedation
     Dosage: CONTINUOUS INFUSION
     Route: 042
     Dates: start: 20240422, end: 20240502
  3. CEFAZOLIN SODIUM [Concomitant]
     Active Substance: CEFAZOLIN SODIUM
     Indication: Antibiotic prophylaxis
     Dosage: 2 G IN 100 ML OF PHYSIOLOGICAL SOLUTION FOR 3 DAYS, CEFAZOLIN TEVA
     Route: 042
     Dates: start: 20240422, end: 20240508
  4. REMIFENTANIL [Concomitant]
     Active Substance: REMIFENTANIL
     Indication: Analgesic therapy
     Dosage: REMIFENTANIL MYLAN GENERICS
     Route: 042
     Dates: start: 20240422, end: 20240513
  5. ENOXAPARIN SODIUM [Concomitant]
     Active Substance: ENOXAPARIN SODIUM
     Indication: Thrombosis prophylaxis
     Dosage: 6000 IU PER DAY
     Route: 058
     Dates: start: 20240422, end: 20240518
  6. DEXMEDETOMIDINE [Concomitant]
     Active Substance: DEXMEDETOMIDINE
     Indication: Sedation
     Dosage: CONTINUOUS INFUSION , DEXMEDETOMIDINA ALTAN
     Route: 042
     Dates: start: 20240422, end: 20240516

REACTIONS (1)
  - Lymphopenia [Recovered/Resolved]

NARRATIVE: CASE EVENT DATE: 20240430
